FAERS Safety Report 8960406 (Version 2)
Quarter: 2013Q1

REPORT INFORMATION
  Report Type: Spontaneous
  Country: FR (occurrence: FR)
  Receive Date: 20121211
  Receipt Date: 20130109
  Transmission Date: 20140127
  Serious: Yes (Other)
  Sender: FDA-Public Use
  Company Number: FR-PFIZER INC-2012309618

PATIENT
  Age: 31 Year
  Sex: Female
  Weight: 128 kg

DRUGS (1)
  1. EFFEXOR LP [Suspect]
     Dosage: 37.5 MG, DAILY

REACTIONS (2)
  - Gastric disorder [Unknown]
  - Dysphagia [Unknown]
